FAERS Safety Report 5703048-X (Version None)
Quarter: 2008Q2

REPORT INFORMATION
  Report Type: 
  Country: None (occurrence: None)
  Receive Date: 20080411
  Receipt Date: 20080331
  Transmission Date: 20081010
  Serious: Yes (Other)
  Sender: FDA-Public Use
  Company Number: CH-ELI_LILLY_AND_COMPANY-CH200802001934

PATIENT
  Age: 57 Year
  Sex: Male
  Weight: 76 kg

DRUGS (2)
  1. CYMBALTA [Suspect]
     Indication: DEPRESSION
     Dosage: 60 MG, DAILY (1/D)
     Route: 048
     Dates: start: 20070822, end: 20071130
  2. CIPRALEX [Concomitant]
     Indication: DEPRESSION
     Dosage: UNK, UNKNOWN
     Dates: start: 20070724, end: 20070801

REACTIONS (3)
  - EJACULATION FAILURE [None]
  - TREMOR [None]
  - TRISMUS [None]
